FAERS Safety Report 7911648-1 (Version None)
Quarter: 2011Q4

REPORT INFORMATION
  Report Type: 
  Country: None (occurrence: None)
  Receive Date: 20111114
  Receipt Date: 20111114
  Transmission Date: 20120403
  Serious: Yes (Hospitalization)
  Sender: FDA-Public Use
  Company Number: None

PATIENT
  Age: 76 Year
  Sex: Female
  Weight: 73.935 kg

DRUGS (1)
  1. COUMADIN [Suspect]

REACTIONS (5)
  - CEREBRAL SMALL VESSEL ISCHAEMIC DISEASE [None]
  - EYE DISORDER [None]
  - INTERNATIONAL NORMALISED RATIO INCREASED [None]
  - CEREBROVASCULAR ACCIDENT [None]
  - THALAMIC INFARCTION [None]
